FAERS Safety Report 6818631-8 (Version None)
Quarter: 2010Q3

REPORT INFORMATION
  Report Type: 
  Country: None (occurrence: None)
  Receive Date: 20100706
  Receipt Date: 20081224
  Transmission Date: 20110219
  Serious: No
  Sender: FDA-Public Use
  Company Number: US-PFIZER INC-2008063381

PATIENT
  Sex: Female
  Weight: 44 kg

DRUGS (2)
  1. ZITHROMAX [Suspect]
     Indication: LYME DISEASE
     Dosage: 500 MG, 1X/DAY
     Route: 042
     Dates: start: 20080715
  2. SYNTHROID [Concomitant]
     Indication: HYPOTHYROIDISM

REACTIONS (4)
  - HEADACHE [None]
  - JARISCH-HERXHEIMER REACTION [None]
  - RENAL PAIN [None]
  - TINNITUS [None]
